FAERS Safety Report 9784506 (Version 1)
Quarter: 2013Q4

REPORT INFORMATION
  Report Type: Spontaneous
  Country: TR (occurrence: TR)
  Receive Date: 20131226
  Receipt Date: 20131226
  Transmission Date: 20140711
  Serious: Yes (Hospitalization)
  Sender: FDA-Public Use
  Company Number: TR-TAKEDA-2013TUS003405

PATIENT
  Sex: 0

DRUGS (2)
  1. COLCHICINE [Suspect]
     Route: 048
  2. FILGRASTIM [Suspect]

REACTIONS (3)
  - Toxicity to various agents [Unknown]
  - Extramedullary haemopoiesis [Unknown]
  - Accidental overdose [Unknown]
